FAERS Safety Report 6138653-2 (Version None)
Quarter: 2009Q1

REPORT INFORMATION
  Report Type: 
  Country: None (occurrence: None)
  Receive Date: 20090326
  Receipt Date: 20090320
  Transmission Date: 20090719
  Serious: Yes (Other)
  Sender: FDA-Public Use
  Company Number: CHNY2008NZ04513

PATIENT
  Sex: Female

DRUGS (1)
  1. HABITROL [Suspect]
     Indication: SMOKING CESSATION THERAPY
     Dosage: 21 MG, QD, TRANSDERMAL
     Route: 062

REACTIONS (3)
  - DYSPNOEA [None]
  - FEELING ABNORMAL [None]
  - TREATMENT FAILURE [None]
